FAERS Safety Report 4986076-1 (Version None)
Quarter: 2006Q2

REPORT INFORMATION
  Report Type: 
  Country: None (occurrence: None)
  Receive Date: 20060428
  Receipt Date: 20060418
  Transmission Date: 20061013
  Serious: Yes (Other)
  Sender: FDA-Public Use
  Company Number: PHBS2006SE05489

PATIENT
  Age: 70 Year
  Sex: Female

DRUGS (9)
  1. ZOMETA [Suspect]
     Indication: METASTASES TO BONE
     Route: 065
  2. BONIVA [Suspect]
     Indication: METASTASES TO BONE
     Route: 065
  3. ALVEDON [Concomitant]
     Route: 065
  4. SYMBICORT TURBUHALER ^DRACO^ [Concomitant]
     Route: 065
  5. BEXTRA [Concomitant]
     Route: 065
  6. OXYCONTIN [Concomitant]
     Route: 065
  7. SELOKEN [Concomitant]
     Route: 065
  8. CYTOSTATIC TREATMENT [Concomitant]
     Route: 065
  9. CILAXORAL [Concomitant]
     Route: 048

REACTIONS (3)
  - IMPAIRED HEALING [None]
  - OSTEONECROSIS [None]
  - TOOTH EXTRACTION [None]
